FAERS Safety Report 18633074 (Version 1)
Quarter: 2020Q4

REPORT INFORMATION
  Report Type: Spontaneous
  Country: US (occurrence: US)
  Receive Date: 20201217
  Receipt Date: 20201217
  Transmission Date: 20210114
  Serious: Yes (Other)
  Sender: FDA-Public Use
  Company Number: None

PATIENT
  Age: 46 Year
  Sex: Female
  Weight: 53 kg

DRUGS (1)
  1. PIPERACILLIN AND TAZOBACTAM [Suspect]
     Active Substance: PIPERACILLIN SODIUM\TAZOBACTAM SODIUM
     Indication: APPENDICEAL ABSCESS
     Route: 042
     Dates: start: 20201113, end: 20201216

REACTIONS (3)
  - Therapy cessation [None]
  - White blood cell count decreased [None]
  - Neutrophil count abnormal [None]

NARRATIVE: CASE EVENT DATE: 20201216
